FAERS Safety Report 9889206 (Version 2)
Quarter: 2014Q1

REPORT INFORMATION
  Report Type: Spontaneous
  Country: DE (occurrence: DE)
  Receive Date: 20140211
  Receipt Date: 20140211
  Transmission Date: 20141002
  Serious: Yes (Hospitalization, Other)
  Sender: FDA-Public Use
  Company Number: DE-BAYER-2014-018193

PATIENT
  Age: 31 Year
  Sex: Female

DRUGS (1)
  1. MIRENA [Suspect]
     Dosage: 20 MCG/24HR, CONT
     Route: 015
     Dates: start: 2012

REACTIONS (14)
  - Procedural pain [Recovered/Resolved]
  - Yellow skin [Recovered/Resolved]
  - Back pain [Not Recovered/Not Resolved]
  - Abdominal pain [Not Recovered/Not Resolved]
  - Breast tenderness [Not Recovered/Not Resolved]
  - Night sweats [Not Recovered/Not Resolved]
  - Vascular pain [Not Recovered/Not Resolved]
  - Renal pain [Not Recovered/Not Resolved]
  - Ovulation pain [Not Recovered/Not Resolved]
  - Vaginal infection [Recovered/Resolved]
  - Cystitis [Recovered/Resolved]
  - Pyelonephritis [Recovered/Resolved]
  - Device dislocation [Not Recovered/Not Resolved]
  - Dysmenorrhoea [None]
